FAERS Safety Report 6618641-X (Version None)
Quarter: 2010Q1

REPORT INFORMATION
  Report Type: 
  Country: None (occurrence: None)
  Receive Date: 20100305
  Receipt Date: 20100305
  Transmission Date: 20100710
  Serious: Yes (Life-Threatening)
  Sender: FDA-Public Use
  Company Number: None

PATIENT
  Age: 56 Year
  Sex: Female
  Weight: 43.0917 kg

DRUGS (2)
  1. CHANTIX [Suspect]
     Indication: TOBACCO USER
     Dosage: 1-3 DAYS 4-7 DAYS 1X EA. DAY/1 IN AM 1 IN PM
     Dates: start: 20100110, end: 20100116
  2. CHANTIX [Suspect]
     Dosage: 8TH DAY TILL END 2 EA DAY 1-AM 1-PM
     Dates: start: 20100117, end: 20100128

REACTIONS (6)
  - BLISTER [None]
  - DYSPHAGIA [None]
  - ERYTHEMA [None]
  - PHARYNGEAL OEDEMA [None]
  - SKIN EXFOLIATION [None]
  - THROAT TIGHTNESS [None]
